FAERS Safety Report 11556013 (Version 1)
Quarter: 2015Q3

REPORT INFORMATION
  Report Type: Spontaneous
  Country: US (occurrence: US)
  Receive Date: 20150916
  Receipt Date: 20150916
  Transmission Date: 20151125
  Serious: No
  Sender: FDA-Public Use
  Company Number: US-ELI_LILLY_AND_COMPANY-US200512002159

PATIENT
  Sex: Female

DRUGS (3)
  1. NEOSPORIN [Concomitant]
     Active Substance: BACITRACIN ZINC\NEOMYCIN SULFATE\POLYMYXIN B SULFATE
     Indication: INJECTION SITE RASH
  2. FORTEO [Suspect]
     Active Substance: TERIPARATIDE
     Dates: start: 200510
  3. FORTEO [Suspect]
     Active Substance: TERIPARATIDE
     Indication: OSTEOPOROSIS
     Dosage: UNK, UNK
     Dates: start: 200510

REACTIONS (8)
  - Pain in extremity [Recovered/Resolved]
  - Tremor [Unknown]
  - Hypersensitivity [Unknown]
  - Movement disorder [Unknown]
  - Injection site rash [Recovered/Resolved]
  - Pain [Recovered/Resolved]
  - Fall [Recovered/Resolved]
  - Muscular weakness [Recovered/Resolved]
